FAERS Safety Report 15116133 (Version 5)
Quarter: 2019Q1

REPORT INFORMATION
  Report Type: Spontaneous
  Country: US (occurrence: US)
  Receive Date: 20180706
  Receipt Date: 20190219
  Transmission Date: 20190417
  Serious: Yes (Hospitalization, Disabling)
  Sender: FDA-Public Use
  Company Number: US-JNJFOC-20180628933

PATIENT
  Sex: Male
  Weight: 77.57 kg

DRUGS (7)
  1. PROTONIX [Concomitant]
     Active Substance: PANTOPRAZOLE SODIUM
     Route: 048
     Dates: start: 20180202
  2. BUDESONIDE. [Concomitant]
     Active Substance: BUDESONIDE
     Route: 048
     Dates: start: 20180228
  3. VITAMIN D [Concomitant]
     Active Substance: CHOLECALCIFEROL
     Dosage: 50000 UNITS
     Route: 048
     Dates: start: 201801, end: 201803
  4. STELARA [Suspect]
     Active Substance: USTEKINUMAB
     Indication: CROHN^S DISEASE
     Route: 058
     Dates: start: 20180413
  5. ZOLOFT [Concomitant]
     Active Substance: SERTRALINE HYDROCHLORIDE
     Route: 048
  6. STELARA [Suspect]
     Active Substance: USTEKINUMAB
     Indication: CROHN^S DISEASE
     Route: 058
     Dates: start: 20180612
  7. XENON [Concomitant]
     Active Substance: XENON\XENON XE-133
     Route: 048

REACTIONS (5)
  - Crohn^s disease [Not Recovered/Not Resolved]
  - Anaemia [Unknown]
  - Encephalitis autoimmune [Not Recovered/Not Resolved]
  - White blood cell count increased [Unknown]
  - Splenomegaly [Unknown]

NARRATIVE: CASE EVENT DATE: 2018
